FAERS Safety Report 8376609-X (Version None)
Quarter: 2012Q2

REPORT INFORMATION
  Report Type: 
  Country: None (occurrence: None)
  Receive Date: 20120522
  Receipt Date: 20120518
  Transmission Date: 20120825
  Serious: Yes (Death, Other)
  Sender: FDA-Public Use
  Company Number: VE-PFIZER INC-2012113276

PATIENT
  Age: 54 Year
  Sex: Female

DRUGS (3)
  1. LERCANIDIPINE [Concomitant]
     Indication: HYPERTENSION
     Dosage: 10 MG, 1X/DAY
     Route: 048
  2. INSULIN INJECTION [Concomitant]
     Indication: DIABETES MELLITUS
     Dosage: 70/30 IU, 1X/DAY
     Route: 058
  3. LIPITOR [Suspect]
     Indication: HYPERCHOLESTEROLAEMIA
     Dosage: 20 MG, 1X/DAY
     Route: 048

REACTIONS (1)
  - ORGAN FAILURE [None]
